FAERS Safety Report 9527310 (Version 2)
Quarter: 2013Q4

REPORT INFORMATION
  Report Type: Spontaneous
  Country: US (occurrence: US)
  Receive Date: 20130917
  Receipt Date: 20131017
  Transmission Date: 20140711
  Serious: No
  Sender: FDA-Public Use
  Company Number: US-BIOGENIDEC-2013BI085271

PATIENT
  Age: 64 Year
  Sex: Male

DRUGS (1)
  1. AVONEX [Suspect]
     Indication: MULTIPLE SCLEROSIS
     Route: 030
     Dates: start: 20080403

REACTIONS (6)
  - Vasculitis [Recovered/Resolved]
  - Hypoaesthesia [Unknown]
  - Ocular retrobulbar haemorrhage [Recovered/Resolved]
  - Visual acuity reduced [Not Recovered/Not Resolved]
  - Eye operation [Recovered/Resolved]
  - Headache [Not Recovered/Not Resolved]
